FAERS Safety Report 9103435 (Version 1)
Quarter: 2013Q1

REPORT INFORMATION
  Report Type: Spontaneous
  Country: US (occurrence: US)
  Receive Date: 20130219
  Receipt Date: 20130219
  Transmission Date: 20140127
  Serious: Yes (Hospitalization)
  Sender: FDA-Public Use
  Company Number: US-GLAXOSMITHKLINE-A1011683A

PATIENT
  Age: 50 Year
  Sex: Female

DRUGS (3)
  1. ADVAIR [Suspect]
     Indication: ASTHMA
     Dosage: 1PUFF TWICE PER DAY
     Route: 055
     Dates: start: 2009
  2. UNKNOWN [Suspect]
     Indication: NEOPLASM MALIGNANT
     Route: 065
  3. UNSPECIFIED MEDICATIONS [Concomitant]

REACTIONS (5)
  - Neoplasm malignant [Unknown]
  - Abdominal mass [Unknown]
  - Pneumonia [Unknown]
  - Immune system disorder [Unknown]
  - Herpes zoster [Unknown]
